FAERS Safety Report 15999880 (Version 1)
Quarter: 2019Q1

REPORT INFORMATION
  Report Type: Report from Study
  Country: IT (occurrence: IT)
  Receive Date: 20190225
  Receipt Date: 20190225
  Transmission Date: 20190418
  Serious: Yes (Other)
  Sender: FDA-Public Use
  Company Number: IT-ROCHE-2268599

PATIENT
  Age: 21 Year
  Sex: Female

DRUGS (19)
  1. RITUXIMAB. [Suspect]
     Active Substance: RITUXIMAB
     Route: 042
  2. SIROLIMUS. [Suspect]
     Active Substance: SIROLIMUS
     Indication: IMMUNOSUPPRESSION
     Route: 065
  3. PREDNISONE. [Concomitant]
     Active Substance: PREDNISONE
  4. CLOFARABINE. [Concomitant]
     Active Substance: CLOFARABINE
  5. ECULIZUMAB [Concomitant]
     Active Substance: ECULIZUMAB
     Dosage: FOR 2 WEEKS
     Route: 065
  6. ECULIZUMAB [Concomitant]
     Active Substance: ECULIZUMAB
     Dosage: 3RD WEEK
     Route: 065
  7. METHYLPREDNISOLONE. [Concomitant]
     Active Substance: METHYLPREDNISOLONE
     Route: 042
  8. DOXORUBICINE [Concomitant]
     Active Substance: DOXORUBICIN
  9. CYTOSINE ARABINOSIDE [Concomitant]
     Active Substance: CYTARABINE
  10. METHOTREXATE. [Concomitant]
     Active Substance: METHOTREXATE
  11. FLUDARABINE [Suspect]
     Active Substance: FLUDARABINE PHOSPHATE
     Indication: IMMUNOSUPPRESSION
     Route: 065
  12. COLCHICINE. [Concomitant]
     Active Substance: COLCHICINE
  13. MYCOPHENOLATE [Suspect]
     Active Substance: MYCOPHENOLIC ACID
     Indication: IMMUNOSUPPRESSION
     Route: 065
  14. ANTITHYMOCYTE GLOBULIN [Concomitant]
     Active Substance: THYMOCYTE IMMUNE GLOBULIN NOS
  15. VALGANCICLOVIR. [Concomitant]
     Active Substance: VALGANCICLOVIR
     Indication: HERPES ZOSTER
     Route: 065
  16. TREOSULFAN [Concomitant]
     Active Substance: TREOSULFAN
  17. RITUXIMAB. [Suspect]
     Active Substance: RITUXIMAB
     Indication: IMMUNOSUPPRESSION
     Route: 042
  18. VINCRISTINE [Concomitant]
     Active Substance: VINCRISTINE
  19. CYCLOPHOSPHAMIDE. [Concomitant]
     Active Substance: CYCLOPHOSPHAMIDE

REACTIONS (1)
  - Febrile neutropenia [Unknown]
